FAERS Safety Report 13325435 (Version 1)
Quarter: 2017Q1

REPORT INFORMATION
  Report Type: Spontaneous
  Country: US (occurrence: US)
  Receive Date: 20170310
  Receipt Date: 20170310
  Transmission Date: 20170428
  Serious: No
  Sender: FDA-Public Use
  Company Number: US-PERRIGO-16US020005

PATIENT
  Age: 29 Year
  Sex: Male
  Weight: 79.37 kg

DRUGS (1)
  1. TESTOSTERONE CYPIONATE. [Suspect]
     Active Substance: TESTOSTERONE CYPIONATE
     Indication: BLOOD TESTOSTERONE DECREASED
     Dosage: 150 MG, EVERY TWO WEEKS
     Route: 030
     Dates: start: 2016, end: 20160906

REACTIONS (4)
  - Dizziness [Not Recovered/Not Resolved]
  - Anxiety [Recovering/Resolving]
  - Exposure to unspecified agent [Recovered/Resolved]
  - Migraine [Not Recovered/Not Resolved]

NARRATIVE: CASE EVENT DATE: 20160906
